FAERS Safety Report 20335825 (Version 1)
Quarter: 2022Q1

REPORT INFORMATION
  Report Type: Spontaneous
  Country: US (occurrence: None)
  Receive Date: 20220113
  Receipt Date: 20220113
  Transmission Date: 20220423
  Serious: No
  Sender: FDA-Public Use
  Company Number: None

PATIENT
  Age: 60 Year
  Sex: Female

DRUGS (2)
  1. SOTROVIMAB [Suspect]
     Active Substance: SOTROVIMAB
     Indication: COVID-19
     Dosage: OTHER FREQUENCY : ONCE;?
     Route: 041
     Dates: start: 20220112, end: 20220112
  2. ERTAPENEM [Concomitant]
     Active Substance: ERTAPENEM
     Dates: start: 20220111, end: 20220113

REACTIONS (2)
  - Pain [None]
  - Urinary tract infection [None]

NARRATIVE: CASE EVENT DATE: 20220112
